FAERS Safety Report 4806143-2 (Version None)
Quarter: 2005Q4

REPORT INFORMATION
  Report Type: 
  Country: None (occurrence: None)
  Receive Date: 20051021
  Receipt Date: 20050921
  Transmission Date: 20060501
  Serious: Yes (Life-Threatening, Hospitalization)
  Sender: FDA-Public Use
  Company Number: FR-SANOFI-SYNTHELABO-A02200502483

PATIENT
  Sex: Male
  Weight: 58.5 kg

DRUGS (15)
  1. PLAVIX [Suspect]
     Indication: ARTERIOSCLEROSIS
     Route: 048
     Dates: start: 20050701, end: 20050831
  2. KARDEGIC [Concomitant]
     Indication: ARTERIOSCLEROSIS
     Route: 048
     Dates: end: 20050701
  3. LASILIX [Concomitant]
     Indication: HYPERTENSION
     Route: 048
     Dates: end: 20050801
  4. LASILIX [Concomitant]
     Route: 048
     Dates: start: 20050801
  5. LASILIX [Concomitant]
     Indication: RENAL FAILURE
     Route: 048
     Dates: end: 20050801
  6. LASILIX [Concomitant]
     Route: 048
     Dates: start: 20050801
  7. HYPERIUM [Concomitant]
     Indication: HYPERTENSION
     Route: 048
     Dates: end: 20050801
  8. SELOKEN [Concomitant]
     Indication: HYPERTENSION
     Route: 048
     Dates: end: 20050801
  9. SELOKEN [Concomitant]
     Route: 048
     Dates: start: 20050801
  10. LOXEN [Concomitant]
     Indication: HYPERTENSION
     Route: 048
  11. FONZYLANE [Concomitant]
     Indication: PERIPHERAL ARTERIAL OCCLUSIVE DISEASE
     Route: 048
     Dates: end: 20050801
  12. MOPRAL [Concomitant]
     Route: 048
  13. ALLOPURINOL [Concomitant]
     Route: 048
  14. DIAMICRON [Concomitant]
     Indication: DIABETES MELLITUS NON-INSULIN-DEPENDENT
     Route: 048
     Dates: end: 20050801
  15. ACTOS [Concomitant]
     Indication: DIABETES MELLITUS NON-INSULIN-DEPENDENT
     Route: 048
     Dates: end: 20050801

REACTIONS (5)
  - FAT EMBOLISM [None]
  - GENERAL PHYSICAL HEALTH DETERIORATION [None]
  - PERIPHERAL EMBOLISM [None]
  - RENAL EMBOLISM [None]
  - RENAL FAILURE [None]
